FAERS Safety Report 10109554 (Version 1)
Quarter: 2014Q2

REPORT INFORMATION
  Report Type: Spontaneous
  Country: US (occurrence: US)
  Receive Date: 20140425
  Receipt Date: 20140425
  Transmission Date: 20141212
  Serious: Yes (Other)
  Sender: FDA-Public Use
  Company Number: US-GLENMARK GENERICS INC.-2014GMK009311

PATIENT
  Age: 29 Year
  Sex: Female

DRUGS (1)
  1. VIORELE [Suspect]
     Indication: CONTRACEPTION
     Dosage: 1 DF, QD
     Route: 048
     Dates: start: 2014, end: 20140414

REACTIONS (2)
  - Unintended pregnancy [Unknown]
  - Drug ineffective [Unknown]
